FAERS Safety Report 8017946-8 (Version None)
Quarter: 2012Q1

REPORT INFORMATION
  Report Type: 
  Country: None (occurrence: None)
  Receive Date: 20120103
  Receipt Date: 20111220
  Transmission Date: 20120608
  Serious: Yes (Hospitalization)
  Sender: FDA-Public Use
  Company Number: CN-SANOFI-AVENTIS-2011SA083443

PATIENT
  Age: 56 Year
  Sex: Male
  Weight: 85 kg

DRUGS (4)
  1. LANTUS [Suspect]
     Route: 058
     Dates: start: 20111213
  2. LANTUS [Suspect]
     Route: 058
     Dates: start: 20110801, end: 20111212
  3. METFORMIN HCL [Concomitant]
     Indication: DIABETES MELLITUS
     Route: 048
     Dates: start: 20060101
  4. LANTUS [Suspect]
     Indication: DIABETES MELLITUS
     Route: 058
     Dates: start: 20110801, end: 20110801

REACTIONS (2)
  - GLUCOSE URINE PRESENT [None]
  - BLOOD GLUCOSE INCREASED [None]
